FAERS Safety Report 12052750 (Version 1)
Quarter: 2016Q1

REPORT INFORMATION
  Report Type: Spontaneous
  Country: AU (occurrence: AU)
  Receive Date: 20160209
  Receipt Date: 20160209
  Transmission Date: 20160526
  Serious: Yes (Other)
  Sender: FDA-Public Use
  Company Number: AU-GLAXOSMITHKLINE-AU2016GSK016020

PATIENT
  Age: 23 Year
  Sex: Male

DRUGS (1)
  1. FLUTICASONE PROPIONATE. [Suspect]
     Active Substance: FLUTICASONE PROPIONATE
     Indication: EOSINOPHILIC OESOPHAGITIS
     Dosage: UNK
     Route: 055

REACTIONS (5)
  - Dysphagia [Recovered/Resolved]
  - Pyrexia [Unknown]
  - Herpes simplex oesophagitis [Recovered/Resolved]
  - Chest pain [Unknown]
  - Herpes simplex [Unknown]
